FAERS Safety Report 13793392 (Version 1)
Quarter: 2017Q3

REPORT INFORMATION
  Report Type: Spontaneous
  Country: US (occurrence: US)
  Receive Date: 20170726
  Receipt Date: 20170726
  Transmission Date: 20171127
  Serious: No
  Sender: FDA-Public Use
  Company Number: US-BAYER-2017-142994

PATIENT
  Sex: Female

DRUGS (4)
  1. MIRALAX [Suspect]
     Active Substance: POLYETHYLENE GLYCOL 3350
  2. PRILOSEC [Concomitant]
     Active Substance: OMEPRAZOLE MAGNESIUM
  3. CARAFATE [Concomitant]
     Active Substance: SUCRALFATE
  4. XYLOCARD [Concomitant]
     Active Substance: LIDOCAINE HYDROCHLORIDE

REACTIONS (1)
  - Drug effect incomplete [Unknown]
